FAERS Safety Report 9516422 (Version 1)
Quarter: 2013Q3

REPORT INFORMATION
  Report Type: Spontaneous
  Country: IN (occurrence: IN)
  Receive Date: 20130911
  Receipt Date: 20130911
  Transmission Date: 20140515
  Serious: Yes (Hospitalization, Other)
  Sender: FDA-Public Use
  Company Number: PHHY2013IN097206

PATIENT
  Age: 46 Year
  Sex: Female

DRUGS (8)
  1. RISPERIDONE [Suspect]
     Indication: ACUTE PSYCHOSIS
     Dosage: 3 MG/DAY
  2. OLANZAPINE [Suspect]
     Indication: ACUTE PSYCHOSIS
     Dosage: 20 MG/DAY
  3. TRIFLUOPERAZINE [Suspect]
     Indication: ACUTE PSYCHOSIS
     Dosage: 15 MG/DAY
  4. QUETIAPINE [Suspect]
     Indication: ACUTE PSYCHOSIS
     Dosage: 300 MG/DAY
  5. QUETIAPINE [Suspect]
     Dosage: 600 MG/DAY
  6. ZIPRASIDONE [Suspect]
     Dosage: 120 MG/DAY
  7. ZIPRASIDONE [Suspect]
     Dosage: 140 MG/DAY
  8. CLONAZEPAM [Suspect]
     Indication: ACUTE PSYCHOSIS
     Dosage: 6 MG/DAY

REACTIONS (11)
  - Acute psychosis [Recovered/Resolved]
  - Condition aggravated [Recovered/Resolved]
  - Amenorrhoea [Unknown]
  - Somatoform disorder pregnancy [Unknown]
  - Menstruation irregular [Unknown]
  - Galactorrhoea [Unknown]
  - Abdominal pain [Unknown]
  - Hyperprolactinaemia [Unknown]
  - Obesity [Unknown]
  - Delusion [Unknown]
  - Drug ineffective [Unknown]
